FAERS Safety Report 6887234-1 (Version None)
Quarter: 2010Q3

REPORT INFORMATION
  Report Type: 
  Country: None (occurrence: None)
  Receive Date: 20100730
  Receipt Date: 20100727
  Transmission Date: 20110219
  Serious: Yes (Hospitalization)
  Sender: FDA-Public Use
  Company Number: US-GILEAD-2010-0030687

PATIENT
  Sex: Female
  Weight: 57.2 kg

DRUGS (12)
  1. LETAIRIS [Suspect]
     Indication: PULMONARY ARTERIAL HYPERTENSION
     Route: 048
     Dates: start: 20100121
  2. FUROSEMIDE [Concomitant]
  3. PREDNISONE [Concomitant]
  4. METOPROLOL TARTRATE [Concomitant]
  5. DILTIAZEM [Concomitant]
  6. ASPIRIN [Concomitant]
  7. CALCIUM [Concomitant]
  8. ERGOCALCIFER [Concomitant]
  9. PRILOSEC [Concomitant]
  10. FERROUS SULFATE [Concomitant]
  11. POT CL MICRO TAB [Concomitant]
  12. MULTI-VITAMINS [Concomitant]

REACTIONS (2)
  - DYSPNOEA [None]
  - SCLERODERMA [None]
